FAERS Safety Report 6272161-3 (Version None)
Quarter: 2009Q3

REPORT INFORMATION
  Report Type: 
  Country: None (occurrence: None)
  Receive Date: 20090717
  Receipt Date: 20090706
  Transmission Date: 20100115
  Serious: Yes (Death, Other)
  Sender: FDA-Public Use
  Company Number: ZA-BRISTOL-MYERS SQUIBB COMPANY-14692016

PATIENT
  Age: 30 Year
  Sex: Female

DRUGS (2)
  1. STAVUDINE [Suspect]
     Indication: HIV INFECTION
  2. DIDANOSINE [Suspect]
     Indication: HIV INFECTION

REACTIONS (2)
  - IMMUNE RECONSTITUTION SYNDROME [None]
  - LACTIC ACIDOSIS [None]
